FAERS Safety Report 21261428 (Version 8)
Quarter: 2023Q1

REPORT INFORMATION
  Report Type: Report from Study
  Country: US (occurrence: US)
  Receive Date: 20220827
  Receipt Date: 20230225
  Transmission Date: 20230417
  Serious: No
  Sender: FDA-Public Use
  Company Number: US-NOVARTISTESTPH-NVSC2022US191678

PATIENT
  Sex: Female

DRUGS (1)
  1. KESIMPTA [Suspect]
     Active Substance: OFATUMUMAB
     Indication: Product used for unknown indication
     Dosage: UNK
     Route: 065

REACTIONS (15)
  - Hypoaesthesia [Unknown]
  - Somnolence [Unknown]
  - Diarrhoea [Unknown]
  - Paraesthesia [Unknown]
  - Nausea [Unknown]
  - Dizziness [Unknown]
  - Libido increased [Unknown]
  - Asthenopia [Unknown]
  - Functional gastrointestinal disorder [Unknown]
  - Emotional poverty [Unknown]
  - Female reproductive tract disorder [Unknown]
  - Flank pain [Unknown]
  - Headache [Recovering/Resolving]
  - Vaginal infection [Recovering/Resolving]
  - Injection site mass [Recovered/Resolved]
